FAERS Safety Report 8802762 (Version 3)
Quarter: 2013Q2

REPORT INFORMATION
  Report Type: Spontaneous
  Country: FI (occurrence: FI)
  Receive Date: 20120921
  Receipt Date: 20130507
  Transmission Date: 20140414
  Serious: Yes (Hospitalization, Other)
  Sender: FDA-Public Use
  Company Number: FI-009507513-1209FIN007546

PATIENT
  Age: 21 Year
  Sex: Female

DRUGS (3)
  1. NEXPLANON [Suspect]
     Dosage: UNK
     Dates: start: 2010, end: 20120918
  2. MARVELON [Suspect]
     Dosage: UNK
     Dates: end: 20120918
  3. PRIMOLUT N [Suspect]
     Dosage: UNK

REACTIONS (5)
  - Intracranial venous sinus thrombosis [Recovering/Resolving]
  - Photophobia [Unknown]
  - Headache [Unknown]
  - Metrorrhagia [Unknown]
  - Menstrual disorder [Unknown]
